FAERS Safety Report 15716897 (Version 1)
Quarter: 2018Q4

REPORT INFORMATION
  Report Type: Spontaneous
  Country: US (occurrence: US)
  Receive Date: 20181213
  Receipt Date: 20181213
  Transmission Date: 20190205
  Serious: Yes (Disabling)
  Sender: FDA-Public Use
  Company Number: None

PATIENT
  Age: 56 Year
  Sex: Female
  Weight: 86.85 kg

DRUGS (1)
  1. CIPROFLOXACIN. [Suspect]
     Active Substance: CIPROFLOXACIN
     Indication: DIVERTICULITIS
     Dosage: ?          QUANTITY:21 TABLET(S);?
     Route: 048
     Dates: start: 20181130, end: 20181208

REACTIONS (10)
  - Swollen tongue [None]
  - Sensory loss [None]
  - Nausea [None]
  - Gastric pH decreased [None]
  - Asthenia [None]
  - Myalgia [None]
  - Back pain [None]
  - Headache [None]
  - Nightmare [None]
  - Confusional state [None]

NARRATIVE: CASE EVENT DATE: 20181203
